FAERS Safety Report 11255421 (Version 1)
Quarter: 2015Q3

REPORT INFORMATION
  Report Type: Spontaneous
  Country: US (occurrence: US)
  Receive Date: 20150709
  Receipt Date: 20150709
  Transmission Date: 20151125
  Serious: No
  Sender: FDA-Public Use
  Company Number: US-SA-2015SA056358

PATIENT
  Age: 51 Year
  Sex: Male

DRUGS (1)
  1. AFREZZA [Suspect]
     Active Substance: INSULIN HUMAN
     Indication: DIABETES MELLITUS
     Dosage: ROUTE: ORAL INHALATION DOSE:4 UNIT(S)
     Dates: start: 20150213, end: 20150421

REACTIONS (1)
  - Cough [Unknown]

NARRATIVE: CASE EVENT DATE: 201503
